FAERS Safety Report 5779078-9 (Version None)
Quarter: 2008Q2

REPORT INFORMATION
  Report Type: 
  Country: None (occurrence: None)
  Receive Date: 20080619
  Receipt Date: 20080610
  Transmission Date: 20081010
  Serious: Yes (Hospitalization, Other)
  Sender: FDA-Public Use
  Company Number: US-BAYER-200810110BCC

PATIENT
  Age: 38 Year
  Sex: Female
  Weight: 88 kg

DRUGS (4)
  1. ORIGINAL PHILLIPS' MILK OF MAGNESIA LIQUID [Suspect]
     Indication: CONSTIPATION
     Route: 048
     Dates: end: 20070101
  2. PHILLIPS LAXATIVE DIETARY SUPPLEMENT [Suspect]
     Indication: CONSTIPATION
  3. MIRALAX [Concomitant]
  4. CASCARA SEGRADA [Concomitant]

REACTIONS (10)
  - BLOOD CHOLESTEROL INCREASED [None]
  - CARDIOMEGALY [None]
  - CEREBROVASCULAR ACCIDENT [None]
  - DIABETES MELLITUS [None]
  - DYSPNOEA [None]
  - DYSURIA [None]
  - MALIGNANT HYPERTENSION [None]
  - RENAL FAILURE [None]
  - THYROID DISORDER [None]
  - WEIGHT DECREASED [None]
